FAERS Safety Report 13886383 (Version 1)
Quarter: 2017Q3

REPORT INFORMATION
  Report Type: Spontaneous
  Country: US (occurrence: US)
  Receive Date: 20170821
  Receipt Date: 20170821
  Transmission Date: 20171127
  Serious: No
  Sender: FDA-Public Use
  Company Number: US-ALLERGAN-1707537US

PATIENT
  Age: 33 Year
  Sex: Male

DRUGS (1)
  1. ANDRODERM [Suspect]
     Active Substance: TESTOSTERONE
     Indication: PRODUCT USED FOR UNKNOWN INDICATION
     Dosage: 4 MG, UNK
     Route: 062
     Dates: start: 201701

REACTIONS (2)
  - Product physical consistency issue [Unknown]
  - Application site hypersensitivity [Unknown]

NARRATIVE: CASE EVENT DATE: 201702
